FAERS Safety Report 9342440 (Version 2)
Quarter: 2013Q2

REPORT INFORMATION
  Report Type: Spontaneous
  Country: CZ (occurrence: CZ)
  Receive Date: 20130611
  Receipt Date: 20130618
  Transmission Date: 20140414
  Serious: Yes (Hospitalization)
  Sender: FDA-Public Use
  Company Number: PHHY2013CZ057498

PATIENT
  Age: 45 Year
  Sex: Female

DRUGS (16)
  1. DOXORUBICIN [Suspect]
     Indication: INVASIVE LOBULAR BREAST CARCINOMA
     Dosage: 60 MG/M2
     Route: 042
     Dates: start: 20111017, end: 20111222
  2. DOXORUBICIN [Suspect]
     Dosage: 60 MG/M2
     Route: 042
     Dates: start: 20111108, end: 20111108
  3. DOXORUBICIN [Suspect]
     Dosage: 60 MG/M2
     Route: 042
     Dates: start: 20111130, end: 20111130
  4. DOXORUBICIN [Suspect]
     Dosage: 60 MG/M2
     Route: 042
     Dates: start: 20111222, end: 20111222
  5. DEXAMETHASONE [Suspect]
     Indication: INVASIVE LOBULAR BREAST CARCINOMA
     Dosage: 12 MG
     Route: 042
     Dates: start: 20111017, end: 20111017
  6. DEXAMETHASONE [Suspect]
     Dosage: 8 MG
     Dates: start: 20111108, end: 20111108
  7. DEXAMETHASONE [Suspect]
     Dosage: 8 MG
     Dates: start: 20111130, end: 20111130
  8. DEXAMETHASONE [Suspect]
     Dosage: 8 MG
     Dates: start: 20111222, end: 20111222
  9. CYCLOPHOSPHAMIDE [Suspect]
     Indication: INVASIVE LOBULAR BREAST CARCINOMA
     Dosage: 600 MG/M2
     Route: 042
     Dates: start: 20111017, end: 20111017
  10. CYCLOPHOSPHAMIDE [Suspect]
     Dosage: 600 MG/M2
     Route: 042
     Dates: start: 20111108, end: 20111108
  11. CYCLOPHOSPHAMIDE [Suspect]
     Dosage: 600 MG/M2
     Route: 042
     Dates: start: 20111130, end: 20111130
  12. CYCLOPHOSPHAMIDE [Suspect]
     Dosage: 600 MG/M2
     Route: 042
     Dates: start: 20111222, end: 20111222
  13. ONDANSETRAN [Concomitant]
     Route: 042
  14. APREPITANT [Concomitant]
     Route: 048
  15. RANITIDINE [Concomitant]
     Dosage: 50 MG
     Route: 042
  16. BISULEPIN [Concomitant]
     Dosage: 2 MG
     Route: 042

REACTIONS (10)
  - Bipolar I disorder [Recovering/Resolving]
  - Psychomotor hyperactivity [Recovering/Resolving]
  - Restlessness [Recovering/Resolving]
  - Abnormal behaviour [Recovering/Resolving]
  - Emotional disorder [Recovering/Resolving]
  - Psychotic disorder [Recovering/Resolving]
  - Mania [Recovered/Resolved]
  - Psychiatric decompensation [Recovering/Resolving]
  - Insomnia [Recovering/Resolving]
  - Drug abuse [Unknown]
